FAERS Safety Report 7617354-5 (Version None)
Quarter: 2011Q3

REPORT INFORMATION
  Report Type: 
  Country: None (occurrence: None)
  Receive Date: 20110718
  Receipt Date: 20110712
  Transmission Date: 20111222
  Serious: Yes (Life-Threatening, Other)
  Sender: FDA-Public Use
  Company Number: JP-BRISTOL-MYERS SQUIBB COMPANY-15799521

PATIENT
  Age: 66 Year
  Sex: Female

DRUGS (3)
  1. NIZATIDINE [Suspect]
     Indication: GASTRITIS
     Route: 048
     Dates: start: 20101204, end: 20110521
  2. KAKKON-TO EXTRACT [Suspect]
     Indication: MUSCULOSKELETAL STIFFNESS
     Route: 048
     Dates: start: 20100125, end: 20110521
  3. AVAPRO [Suspect]
     Indication: HYPERTENSION
     Route: 048
     Dates: start: 20101204, end: 20110618

REACTIONS (1)
  - INTERSTITIAL LUNG DISEASE [None]
